FAERS Safety Report 16520533 (Version 1)
Quarter: 2019Q3

REPORT INFORMATION
  Report Type: Spontaneous
  Country: US (occurrence: US)
  Receive Date: 20190702
  Receipt Date: 20190702
  Transmission Date: 20191004
  Serious: Yes (Other)
  Sender: FDA-Public Use
  Company Number: US-ASTRAZENECA-2019SE94544

PATIENT
  Age: 726 Month
  Sex: Female

DRUGS (1)
  1. SYMBICORT [Suspect]
     Active Substance: BUDESONIDE\FORMOTEROL FUMARATE DIHYDRATE
     Indication: BRONCHITIS
     Dosage: TWO PUFFS TWICE A DAY
     Route: 055
     Dates: start: 201903

REACTIONS (6)
  - Dysphonia [Unknown]
  - Wrong technique in product usage process [Unknown]
  - Bronchial secretion retention [Not Recovered/Not Resolved]
  - Intentional device misuse [Unknown]
  - Neoplasm malignant [Unknown]
  - Product use issue [Unknown]

NARRATIVE: CASE EVENT DATE: 201903
